FAERS Safety Report 21112843 (Version 3)
Quarter: 2023Q1

REPORT INFORMATION
  Report Type: Spontaneous
  Country: AR (occurrence: AR)
  Receive Date: 20220721
  Receipt Date: 20230303
  Transmission Date: 20230417
  Serious: Yes (Other)
  Sender: FDA-Public Use
  Company Number: AR-PFIZER INC-PV202200026832

PATIENT
  Age: 65 Year
  Sex: Male

DRUGS (1)
  1. SUTENT [Suspect]
     Active Substance: SUNITINIB MALATE
     Indication: Metastatic renal cell carcinoma
     Dosage: 50 MG, CYCLIC (21 DAYS 2/1 SCHEME)
     Dates: start: 20180323

REACTIONS (6)
  - Cerebrovascular accident [Unknown]
  - Dementia [Unknown]
  - General physical health deterioration [Unknown]
  - Muscle rigidity [Unknown]
  - Hypoacusis [Unknown]
  - Cognitive disorder [Unknown]
